FAERS Safety Report 16600993 (Version 1)
Quarter: 2019Q3

REPORT INFORMATION
  Report Type: Spontaneous
  Country: FR (occurrence: FR)
  Receive Date: 20190719
  Receipt Date: 20190719
  Transmission Date: 20191004
  Serious: Yes (Hospitalization)
  Sender: FDA-Public Use
  Company Number: FR-TEVA-2019-FR-1078839

PATIENT
  Age: 89 Year
  Sex: Female

DRUGS (9)
  1. BISOCE [Concomitant]
     Active Substance: BISOPROLOL
  2. LEVOTHYROX [Concomitant]
     Active Substance: LEVOTHYROXINE
  3. FUMAFER [Concomitant]
     Active Substance: FERROUS FUMARATE
  4. XARELTO [Concomitant]
     Active Substance: RIVAROXABAN
  5. UVEDOSE [Concomitant]
     Active Substance: CHOLECALCIFEROL
  6. AMOXICILLINE [Suspect]
     Active Substance: AMOXICILLIN
     Indication: BRONCHOPNEUMOPATHY
     Route: 048
     Dates: start: 20190302, end: 20190305
  7. RAMIPRIL. [Concomitant]
     Active Substance: RAMIPRIL
  8. LASILIX [Concomitant]
     Active Substance: FUROSEMIDE
  9. DIFFU K [Concomitant]
     Active Substance: POTASSIUM CHLORIDE

REACTIONS (3)
  - Eosinophilia [Recovered/Resolved]
  - Transaminases increased [Recovered/Resolved]
  - Toxic skin eruption [Recovered/Resolved]

NARRATIVE: CASE EVENT DATE: 20190305
